FAERS Safety Report 25064704 (Version 2)
Quarter: 2025Q1

REPORT INFORMATION
  Report Type: Other
  Country: FR (occurrence: FR)
  Receive Date: 20250311
  Receipt Date: 20250320
  Transmission Date: 20250409
  Serious: Yes (Hospitalization, Other)
  Sender: ALVOGEN
  Company Number: FR-ALVOGEN-2025096412

PATIENT
  Age: 16 Year
  Sex: Female

DRUGS (9)
  1. SERTRALINE [Suspect]
     Active Substance: SERTRALINE HYDROCHLORIDE
     Indication: Anxiety
  2. VENLAFAXINE [Suspect]
     Active Substance: VENLAFAXINE HYDROCHLORIDE
     Indication: Substance use
  3. CITALOPRAM [Suspect]
     Active Substance: CITALOPRAM
     Indication: Substance use
  4. CANNABIS SATIVA SUBSP. INDICA TOP [Suspect]
     Active Substance: CANNABIS SATIVA SUBSP. INDICA TOP
     Indication: Substance use
  5. PAROXETINE [Suspect]
     Active Substance: PAROXETINE
     Indication: Substance use
  6. TRIHEXYPHENIDYL [Suspect]
     Active Substance: TRIHEXYPHENIDYL
     Indication: Substance use
  7. ESCITALOPRAM [Suspect]
     Active Substance: ESCITALOPRAM OXALATE
     Indication: Substance use
  8. HYDROXYZINE [Suspect]
     Active Substance: HYDROXYZINE HYDROCHLORIDE
     Indication: Anxiety
  9. ARIPIPRAZOLE [Suspect]
     Active Substance: ARIPIPRAZOLE
     Indication: Anxiety

REACTIONS (13)
  - Toxicity to various agents [Unknown]
  - Drug interaction [Unknown]
  - Cognitive disorder [Unknown]
  - Disorganised speech [Unknown]
  - Disorientation [Recovering/Resolving]
  - Headache [Unknown]
  - Labelled drug-drug interaction issue [Unknown]
  - Confusional state [Unknown]
  - Mydriasis [Unknown]
  - Hallucinations, mixed [Recovering/Resolving]
  - Sinus tachycardia [Unknown]
  - Wrong technique in product usage process [Unknown]
  - Substance use [Unknown]
